FAERS Safety Report 14715181 (Version 2)
Quarter: 2018Q2

REPORT INFORMATION
  Report Type: Spontaneous
  Country: CN (occurrence: CN)
  Receive Date: 20180404
  Receipt Date: 20180411
  Transmission Date: 20180711
  Serious: Yes (Hospitalization)
  Sender: FDA-Public Use
  Company Number: CN-PFIZER INC-2018135998

PATIENT
  Age: 82 Year
  Sex: Female

DRUGS (6)
  1. VANCOMYCIN [Concomitant]
     Active Substance: VANCOMYCIN
     Dosage: 0.5 G, TWICE DAILY (EVERY 12 HOURS, Q12H)
     Route: 041
     Dates: start: 20171222, end: 20180101
  2. FURSEMIDE [Concomitant]
     Active Substance: FUROSEMIDE
     Dosage: UNK
     Route: 041
     Dates: start: 20170101
  3. BUMETANIDE. [Concomitant]
     Active Substance: BUMETANIDE
     Dosage: UNK
     Route: 041
     Dates: start: 20170101
  4. MEPEM [Suspect]
     Active Substance: MEROPENEM
     Dosage: 0.5 G, THRICE DAILY (EVERY 8 HOURS, Q8H)
     Route: 041
     Dates: start: 20171222, end: 20171228
  5. FUROSEMIDE. [Concomitant]
     Active Substance: FUROSEMIDE
     Dosage: UNK
     Route: 048
     Dates: start: 20171224, end: 20180102
  6. SPIRONOLACTONE. [Concomitant]
     Active Substance: SPIRONOLACTONE
     Dosage: UNK
     Route: 048
     Dates: start: 20171224, end: 20180102

REACTIONS (1)
  - Renal impairment [Recovering/Resolving]

NARRATIVE: CASE EVENT DATE: 20180101
